FAERS Safety Report 8862041 (Version 1)
Quarter: 2012Q4

REPORT INFORMATION
  Report Type: 
  Country: US (occurrence: US)
  Receive Date: 20121025
  Receipt Date: 20121025
  Transmission Date: 20130627
  Serious: No
  Sender: FDA-Public Use
  Company Number: US-TARO-2012P1052271

PATIENT
  Age: 62 Year
  Sex: Male
  Weight: 89.81 kg

DRUGS (2)
  1. CLOTRIMAZOLE [Suspect]
     Dates: start: 20120726, end: 20120726
  2. UNSPECIFIED [Concomitant]

REACTIONS (1)
  - Pruritus [Unknown]
